FAERS Safety Report 10272027 (Version 5)
Quarter: 2014Q4

REPORT INFORMATION
  Report Type: Report from Study
  Country: CA (occurrence: CA)
  Receive Date: 20140702
  Receipt Date: 20141215
  Transmission Date: 20150528
  Serious: Yes (Hospitalization, Other)
  Sender: FDA-Public Use
  Company Number: PHHY2014CA080614

PATIENT
  Sex: Male

DRUGS (3)
  1. EXJADE [Suspect]
     Active Substance: DEFERASIROX
     Indication: APLASTIC ANAEMIA
     Dosage: 1000 MG, QD
     Route: 048
     Dates: start: 20140529, end: 20140805
  2. REVOLADE [Suspect]
     Active Substance: ELTROMBOPAG
     Indication: PRODUCT USED FOR UNKNOWN INDICATION
     Route: 065
  3. FLOMAX//MORNIFLUMATE [Concomitant]
     Indication: PRODUCT USED FOR UNKNOWN INDICATION
     Route: 065

REACTIONS (21)
  - Asthenia [Unknown]
  - Blood creatinine increased [Unknown]
  - Serum ferritin increased [Unknown]
  - Mouth haemorrhage [Unknown]
  - Pneumonia [Unknown]
  - Platelet count decreased [Unknown]
  - Haematochezia [Unknown]
  - Neck pain [Unknown]
  - Fatigue [Unknown]
  - Oropharyngeal pain [Unknown]
  - Eating disorder [Unknown]
  - Ear pain [Unknown]
  - Melaena [Recovered/Resolved]
  - Haemoglobin decreased [Unknown]
  - Injection site infection [Unknown]
  - Gingival bleeding [Unknown]
  - Abasia [Unknown]
  - Malaise [Unknown]
  - Blood iron increased [Unknown]
  - Epistaxis [Unknown]
  - Respiratory tract congestion [Unknown]
